FAERS Safety Report 5095785-8 (Version None)
Quarter: 2006Q3

REPORT INFORMATION
  Report Type: 
  Country: None (occurrence: None)
  Receive Date: 20060905
  Receipt Date: 20060718
  Transmission Date: 20061208
  Serious: Yes (Hospitalization)
  Sender: FDA-Public Use
  Company Number: PHHO2006IT11710

PATIENT
  Age: 72 Year
  Sex: Male
  Weight: 52 kg

DRUGS (2)
  1. ICL670A [Suspect]
     Indication: BLOOD IRON INCREASED
     Dosage: 1000 MG, QD
     Route: 048
     Dates: start: 20060404, end: 20060710
  2. FUROSEMIDE [Concomitant]
     Indication: CARDIAC FAILURE

REACTIONS (3)
  - HAEMOLYTIC ANAEMIA [None]
  - NAUSEA [None]
  - VOMITING [None]
